FAERS Safety Report 4319142-4 (Version None)
Quarter: 2004Q1

REPORT INFORMATION
  Report Type: 
  Country: None (occurrence: None)
  Receive Date: 20040316
  Receipt Date: 20040304
  Transmission Date: 20041129
  Serious: Yes (Hospitalization)
  Sender: FDA-Public Use
  Company Number: 2004PK00169

PATIENT
  Age: 53 Year
  Sex: Female

DRUGS (11)
  1. SEROQUEL [Suspect]
     Dosage: 400 MG DAILY PO
     Dates: start: 20021129, end: 20031002
  2. SEROQUEL [Suspect]
     Dosage: 450 MG DAILY PO
     Dates: start: 20031003, end: 20031012
  3. SEROQUEL [Suspect]
     Dosage: 475 MG DAILY PO
     Dates: start: 20031013
  4. TEGRETOL [Suspect]
     Dosage: 800 MG DAILY PO
     Dates: start: 20030925, end: 20031017
  5. TEGRETOL [Suspect]
     Dosage: 200 MG DAILY PO
     Dates: start: 20031028, end: 20031104
  6. TEGRETOL [Suspect]
     Dosage: 400 MG DAILY PO
     Dates: start: 20031105, end: 20031113
  7. TEGRETOL [Suspect]
     Dosage: 600 MG DAILY PO
     Dates: start: 20031114
  8. SEROPRAM [Suspect]
     Dosage: 60 MG DAILY PO
     Dates: start: 20021201
  9. THYROID TAB [Suspect]
     Dosage: 0.1 MG DAILY
     Dates: start: 20021201
  10. TOLVON [Suspect]
     Dosage: 90 MG DAILY
     Dates: start: 20030801
  11. CYCLO-PREMELLA [Suspect]
     Dosage: 0.625 MG DAILY
     Dates: start: 20031001, end: 20031214

REACTIONS (10)
  - ANTINUCLEAR ANTIBODY POSITIVE [None]
  - C-REACTIVE PROTEIN INCREASED [None]
  - COMPLEMENT FACTOR C4 DECREASED [None]
  - COUGH [None]
  - DRUG INTERACTION [None]
  - HOMANS' SIGN [None]
  - HYPONATRAEMIA [None]
  - MYALGIA [None]
  - OEDEMA PERIPHERAL [None]
  - SYSTEMIC LUPUS ERYTHEMATOSUS [None]
